FAERS Safety Report 20372677 (Version 1)
Quarter: 2022Q1

REPORT INFORMATION
  Report Type: Spontaneous
  Country: US (occurrence: None)
  Receive Date: 20220125
  Receipt Date: 20220125
  Transmission Date: 20220423
  Serious: Yes (Hospitalization)
  Sender: FDA-Public Use
  Company Number: US-ROCHE-3007349

PATIENT
  Sex: Male

DRUGS (1)
  1. ESBRIET [Suspect]
     Active Substance: PIRFENIDONE
     Indication: Idiopathic pulmonary fibrosis
     Dosage: 267 MG 1 TABLET 3 TIMES A DAY FOR WEEK 1, THEN 2 TABLETS 3 TIMES A DAY FOR WEEK 2 THEN 3 TABLETS 3 T
     Route: 048
     Dates: start: 20211229

REACTIONS (1)
  - Pneumonia [Unknown]
